FAERS Safety Report 5525901-2 (Version None)
Quarter: 2007Q4

REPORT INFORMATION
  Report Type: 
  Country: None (occurrence: None)
  Receive Date: 20071126
  Receipt Date: 20071116
  Transmission Date: 20080405
  Serious: Yes (Hospitalization)
  Sender: FDA-Public Use
  Company Number: JP-ASTRAZENECA-2007AP03780

PATIENT
  Age: 27944 Day
  Sex: Male

DRUGS (11)
  1. TENORMIN [Suspect]
     Indication: CARDIAC FAILURE
     Route: 048
     Dates: end: 20070610
  2. ASPIRIN [Suspect]
     Route: 048
     Dates: start: 20070427, end: 20070610
  3. ZANTAC [Suspect]
     Route: 048
     Dates: start: 20070427, end: 20070610
  4. BEPRICOR [Suspect]
     Route: 048
     Dates: start: 20070427, end: 20070610
  5. LENDORMIN [Suspect]
     Route: 048
     Dates: end: 20070610
  6. LIPITOR [Suspect]
     Route: 048
     Dates: end: 20070610
  7. PLETAL [Suspect]
     Route: 048
  8. SIGMART [Suspect]
     Route: 048
     Dates: start: 20070427, end: 20070610
  9. WARFARIN POTASSIUM [Suspect]
     Route: 048
     Dates: start: 20070427, end: 20070610
  10. FUROSEMIDE [Concomitant]
  11. AMBROXOL HYDROCHLORIDE [Concomitant]

REACTIONS (1)
  - AGRANULOCYTOSIS [None]
